FAERS Safety Report 24916966 (Version 1)
Quarter: 2025Q1

REPORT INFORMATION
  Report Type: Spontaneous
  Country: US (occurrence: None)
  Receive Date: 20250201
  Receipt Date: 20250201
  Transmission Date: 20250409
  Serious: Yes (Disabling)
  Sender: FDA-CTU
  Company Number: None

PATIENT
  Age: 47 Year
  Sex: Female
  Weight: 56.25 kg

DRUGS (1)
  1. CIPRO [Suspect]
     Active Substance: CIPROFLOXACIN HYDROCHLORIDE
     Indication: Urinary tract infection
     Dosage: 1 TABLET TICE A DAY ORAL ?
     Route: 048
     Dates: start: 20250124, end: 20250127

REACTIONS (5)
  - Ear pain [None]
  - Tinnitus [None]
  - Headache [None]
  - Nausea [None]
  - Thirst [None]

NARRATIVE: CASE EVENT DATE: 20250125
